FAERS Safety Report 4512444-8 (Version None)
Quarter: 2004Q4

REPORT INFORMATION
  Report Type: 
  Country: None (occurrence: None)
  Receive Date: 20041124
  Receipt Date: 20041110
  Transmission Date: 20050328
  Serious: Yes (Hospitalization, Other)
  Sender: FDA-Public Use
  Company Number: USA041183703

PATIENT
  Age: 19 Year
  Sex: Male

DRUGS (4)
  1. ZYPREXA [Suspect]
     Indication: MAJOR DEPRESSION
     Dosage: 10 MG/1 DAY
     Dates: start: 20040908, end: 20041109
  2. ZYPREXA [Suspect]
     Indication: PSYCHOTIC DISORDER
     Dosage: 10 MG/1 DAY
     Dates: start: 20040908, end: 20041109
  3. ZOLOFT [Concomitant]
  4. ATIVAN [Concomitant]

REACTIONS (13)
  - ALCOHOL USE [None]
  - ANAEMIA [None]
  - DRUG WITHDRAWAL CONVULSIONS [None]
  - EPISTAXIS [None]
  - FACE INJURY [None]
  - FALL [None]
  - GRAND MAL CONVULSION [None]
  - HEADACHE [None]
  - HYPERTENSIVE ENCEPHALOPATHY [None]
  - MULTIPLE DRUG OVERDOSE INTENTIONAL [None]
  - MUSCULOSKELETAL STIFFNESS [None]
  - SUICIDE ATTEMPT [None]
  - TONGUE BITING [None]
